FAERS Safety Report 4660548-1 (Version None)
Quarter: 2005Q2

REPORT INFORMATION
  Report Type: 
  Country: None (occurrence: None)
  Receive Date: 20050512
  Receipt Date: 20050502
  Transmission Date: 20051028
  Serious: Yes (Other)
  Sender: FDA-Public Use
  Company Number: US-BRISTOL-MYERS SQUIBB COMPANY-12953501

PATIENT
  Age: 70 Year
  Sex: Female

DRUGS (1)
  1. CEFZIL [Suspect]

REACTIONS (1)
  - HAEMORRHAGE [None]
